FAERS Safety Report 6668428-7 (Version None)
Quarter: 2010Q2

REPORT INFORMATION
  Report Type: 
  Country: None (occurrence: None)
  Receive Date: 20100401
  Receipt Date: 20100318
  Transmission Date: 20101027
  Serious: Yes (Disabling)
  Sender: FDA-Public Use
  Company Number: 2010AL001790

PATIENT
  Age: 76 Year
  Sex: Male

DRUGS (6)
  1. BICALUTAMIDE [Suspect]
     Indication: BENIGN PROSTATIC HYPERPLASIA
     Dosage: 150 MG;QD;PO
     Route: 048
     Dates: start: 20100125, end: 20100217
  2. ACETYSALICYLIC ACID [Concomitant]
  3. ATORVASTATIN [Concomitant]
  4. AMLODIPINE [Concomitant]
  5. BENDROFLUMETHIAZIDE [Concomitant]
  6. LOSARTAN POTASSIUM [Concomitant]

REACTIONS (1)
  - MYALGIA [None]
